FAERS Safety Report 21400531 (Version 2)
Quarter: 2022Q4

REPORT INFORMATION
  Report Type: Report from Study
  Country: MX (occurrence: MX)
  Receive Date: 20221003
  Receipt Date: 20221027
  Transmission Date: 20230113
  Serious: Yes (Death, Other)
  Sender: FDA-Public Use
  Company Number: MX-NOVARTISPH-NVSC2022MX222165

PATIENT
  Age: 86 Year
  Sex: Female
  Weight: 45 kg

DRUGS (1)
  1. EXELON [Suspect]
     Active Substance: RIVASTIGMINE TARTRATE
     Indication: Dementia
     Dosage: 1 DOSAGE FORM, QD
     Route: 062

REACTIONS (1)
  - Pneumonia [Fatal]
